FAERS Safety Report 9370190 (Version 1)
Quarter: 2013Q2

REPORT INFORMATION
  Report Type: Spontaneous
  Country: US (occurrence: None)
  Receive Date: 20130624
  Receipt Date: 20130624
  Transmission Date: 20140414
  Serious: Yes (Other)
  Sender: FDA-Public Use
  Company Number: 20130305

PATIENT
  Age: 84 Year
  Sex: Female

DRUGS (2)
  1. PHENYTOIN SODIUM [Suspect]
     Indication: CONVULSION
  2. PHENOBARBITAL [Suspect]

REACTIONS (3)
  - Gait disturbance [None]
  - Dysarthria [None]
  - Cognitive disorder [None]
